FAERS Safety Report 9459971 (Version 1)
Quarter: 2013Q3

REPORT INFORMATION
  Report Type: Report from Study
  Country: NL (occurrence: NL)
  Receive Date: 20130815
  Receipt Date: 20130815
  Transmission Date: 20140515
  Serious: Yes (Death)
  Sender: FDA-Public Use
  Company Number: PHHY2013NL087765

PATIENT
  Sex: Female

DRUGS (3)
  1. ZOMETA [Suspect]
     Indication: BREAST CANCER METASTATIC
     Dosage: 4 MG/100ML, 1 EVERY 8 WEEKS
     Route: 042
  2. ZOMETA [Suspect]
     Dosage: 4 MG/100ML, 1 EVERY 8 WEEKS
     Route: 042
     Dates: start: 20120312
  3. ZOMETA [Suspect]
     Dosage: 4 MG/100ML, 1 EVERY 8 WEEKS
     Route: 042
     Dates: start: 20130701

REACTIONS (1)
  - Death [Fatal]
